FAERS Safety Report 5891408-6 (Version None)
Quarter: 2008Q3

REPORT INFORMATION
  Report Type: 
  Country: None (occurrence: None)
  Receive Date: 20080922
  Receipt Date: 20080911
  Transmission Date: 20090109
  Serious: Yes (Hospitalization)
  Sender: FDA-Public Use
  Company Number: PH-MERCK-0809PHL00013

PATIENT
  Sex: Female

DRUGS (2)
  1. JANUMET [Suspect]
     Indication: DIABETES MELLITUS
     Route: 048
     Dates: start: 20080101
  2. JANUMET [Suspect]
     Route: 048
     Dates: start: 20080101

REACTIONS (2)
  - HYPOGLYCAEMIA [None]
  - VERTIGO [None]
